FAERS Safety Report 6974811-2 (Version None)
Quarter: 2010Q3

REPORT INFORMATION
  Report Type: 
  Country: None (occurrence: None)
  Receive Date: 20100909
  Receipt Date: 20081217
  Transmission Date: 20110219
  Serious: No
  Sender: FDA-Public Use
  Company Number: US-WYE-H07349808

PATIENT
  Sex: Female
  Weight: 83.99 kg

DRUGS (6)
  1. PRISTIQ [Suspect]
     Indication: DEPRESSION
     Route: 048
     Dates: start: 20081206
  2. PRILOSEC [Concomitant]
  3. XANAX [Concomitant]
  4. PREDNISONE [Concomitant]
  5. LUNESTA [Suspect]
     Indication: INSOMNIA
     Dosage: UNKNOWN
     Dates: start: 20081206
  6. AMBIEN CR [Concomitant]

REACTIONS (1)
  - DYSGEUSIA [None]
